FAERS Safety Report 5637403-3 (Version None)
Quarter: 2008Q1

REPORT INFORMATION
  Report Type: 
  Country: None (occurrence: None)
  Receive Date: 20080225
  Receipt Date: 20080218
  Transmission Date: 20080703
  Serious: Yes (Hospitalization, Other)
  Sender: FDA-Public Use
  Company Number: AU-AVENTIS-200811581GDDC

PATIENT
  Age: 64 Year
  Sex: Male

DRUGS (9)
  1. LANTUS [Suspect]
     Route: 058
     Dates: start: 20070313
  2. NOVORAPID [Concomitant]
  3. UREMIDE [Concomitant]
  4. PROGOUT [Concomitant]
  5. PRAZOSINE [Concomitant]
  6. ZANIDIP [Concomitant]
  7. ATACAND [Concomitant]
  8. ASTRIX [Concomitant]
  9. LIPIDIL [Concomitant]

REACTIONS (5)
  - CONFUSIONAL STATE [None]
  - DEHYDRATION [None]
  - DYSPNOEA [None]
  - GASTRITIS [None]
  - RENAL FAILURE [None]
